FAERS Safety Report 10969903 (Version 1)
Quarter: 2015Q1

REPORT INFORMATION
  Report Type: Spontaneous
  Country: None (occurrence: None)
  Receive Date: 20150226
  Receipt Date: 20150226
  Transmission Date: 20150721
  Serious: No
  Sender: FDA-Public Use
  Company Number: TPA2010A01842

PATIENT
  Age: 48 Year
  Sex: Male
  Weight: 136.08 kg

DRUGS (6)
  1. LITTLE PURPLE PILL (OTHER THERAPEUTIC PRODUCTS) [Concomitant]
  2. FISH OIL [Concomitant]
     Active Substance: FISH OIL
  3. ULORIC [Suspect]
     Active Substance: FEBUXOSTAT
     Indication: GOUT
     Route: 048
     Dates: start: 20100312
  4. PREDNISONE. [Concomitant]
     Active Substance: PREDNISONE
  5. VITAMIN D (ERGOCALCIFEROL) [Concomitant]
     Active Substance: ERGOCALCIFEROL
  6. MULTIVITAMINS (ERGOCALCIFEROL, ASCORBIC ACID, FOLIC ACID, THIAMINE HYDROCHLORIDE, RETINOL, RIBOFLAVIN, NICOTINAMIDE, PANTHENOL) [Concomitant]

REACTIONS (6)
  - Abdominal pain upper [None]
  - Fatigue [None]
  - Headache [None]
  - Musculoskeletal chest pain [None]
  - Asthenia [None]
  - Change of bowel habit [None]

NARRATIVE: CASE EVENT DATE: 20100319
